FAERS Safety Report 10019458 (Version 9)
Quarter: 2015Q2

REPORT INFORMATION
  Report Type: Spontaneous
  Country: US (occurrence: US)
  Receive Date: 20140318
  Receipt Date: 20150406
  Transmission Date: 20150821
  Serious: Yes (Other)
  Sender: FDA-Public Use
  Company Number: US-009507513-1403USA006493

PATIENT
  Sex: Male
  Weight: 74.38 kg

DRUGS (3)
  1. FINASTERIDE. [Suspect]
     Active Substance: FINASTERIDE
     Dosage: UNK
     Route: 048
     Dates: start: 2005, end: 2005
  2. PROPECIA [Suspect]
     Active Substance: FINASTERIDE
     Indication: ANDROGENETIC ALOPECIA
     Dosage: 1 MG, UNK
     Route: 048
     Dates: start: 200212, end: 200305
  3. FINASTERIDE. [Suspect]
     Active Substance: FINASTERIDE
     Indication: ALOPECIA
     Dosage: 1 MG, UNK
     Route: 048
     Dates: start: 200212, end: 200305

REACTIONS (41)
  - Loss of libido [Not Recovered/Not Resolved]
  - Malaise [Recovering/Resolving]
  - Genital hypoaesthesia [Not Recovered/Not Resolved]
  - Papilloma viral infection [Unknown]
  - Pain in extremity [Unknown]
  - Infertility male [Unknown]
  - Feeling cold [Not Recovered/Not Resolved]
  - Vertigo [Recovering/Resolving]
  - Depression [Recovering/Resolving]
  - Tension [Unknown]
  - Musculoskeletal pain [Unknown]
  - Anxiety [Unknown]
  - Sexual dysfunction [Not Recovered/Not Resolved]
  - Depression [Not Recovered/Not Resolved]
  - Erectile dysfunction [Recovered/Resolved]
  - Obsessive-compulsive disorder [Unknown]
  - Initial insomnia [Recovering/Resolving]
  - Suicidal ideation [Recovering/Resolving]
  - Biopsy testes [Unknown]
  - Palpitations [Unknown]
  - Disturbance in attention [Unknown]
  - Headache [Recovering/Resolving]
  - Ligament rupture [Unknown]
  - Hangover [Unknown]
  - Partner stress [Unknown]
  - Varicocele [Unknown]
  - Azoospermia [Unknown]
  - Sertoli-cell-only syndrome [Unknown]
  - Constipation [Not Recovered/Not Resolved]
  - Testicular disorder [Unknown]
  - Drug hypersensitivity [Unknown]
  - Seasonal allergy [Unknown]
  - Social fear [Unknown]
  - Hypogonadism [Unknown]
  - Agitation [Unknown]
  - Social phobia [Not Recovered/Not Resolved]
  - Genital lesion [Unknown]
  - Neck pain [Unknown]
  - Musculoskeletal discomfort [Unknown]
  - Attention deficit/hyperactivity disorder [Unknown]
  - Urinary retention [Unknown]

NARRATIVE: CASE EVENT DATE: 200212
